FAERS Safety Report 7645608-5 (Version None)
Quarter: 2011Q3

REPORT INFORMATION
  Report Type: 
  Country: None (occurrence: None)
  Receive Date: 20110729
  Receipt Date: 20110722
  Transmission Date: 20111222
  Serious: Yes (Other)
  Sender: FDA-Public Use
  Company Number: PHHY2011GB66110

PATIENT
  Age: 69 Year
  Sex: Female

DRUGS (4)
  1. WARFARIN SODIUM [Suspect]
     Indication: DEEP VEIN THROMBOSIS
     Dosage: 4 MG, UNK
     Route: 048
     Dates: start: 20110606
  2. WARFARIN SODIUM [Suspect]
     Dosage: 3 MG, UNK
     Route: 048
  3. LOSARTAN POTASSIUM [Concomitant]
     Indication: HYPERTENSION
  4. BENDROFLUMETHIAZIDE [Concomitant]
     Indication: HYPERTENSION

REACTIONS (5)
  - DYSPNOEA [None]
  - HAEMATURIA [None]
  - PAIN [None]
  - OEDEMA PERIPHERAL [None]
  - DIZZINESS [None]
